FAERS Safety Report 8525238-3 (Version None)
Quarter: 2012Q3

REPORT INFORMATION
  Report Type: 
  Country: None (occurrence: None)
  Receive Date: 20120720
  Receipt Date: 20120716
  Transmission Date: 20120928
  Serious: Yes (Death)
  Sender: FDA-Public Use
  Company Number: PHHY2012JP061951

PATIENT
  Age: 56 Year
  Sex: Male

DRUGS (6)
  1. PLASMA [Concomitant]
     Indication: INTERSTITIAL LUNG DISEASE
  2. PREDNISOLONE [Suspect]
     Indication: INTERSTITIAL LUNG DISEASE
     Dosage: 1 MG/KG, PER DAY
  3. CYCLOSPORINE [Suspect]
     Indication: INTERSTITIAL LUNG DISEASE
     Dosage: 75 MG, BID
     Route: 048
  4. METHYLPREDNISOLONE [Suspect]
     Indication: INTERSTITIAL LUNG DISEASE
  5. IMMUNE GLOBULIN NOS [Concomitant]
     Indication: INTERSTITIAL LUNG DISEASE
     Route: 042
  6. CYCLOSPORINE [Suspect]
     Dosage: 0.17 MG/KG, PER HOUR
     Route: 042

REACTIONS (3)
  - DISEASE PROGRESSION [None]
  - INTERSTITIAL LUNG DISEASE [None]
  - RESPIRATORY FAILURE [None]
